FAERS Safety Report 10672976 (Version 11)
Quarter: 2015Q2

REPORT INFORMATION
  Report Type: Spontaneous
  Country: US (occurrence: US)
  Receive Date: 20141223
  Receipt Date: 20150515
  Transmission Date: 20150821
  Serious: Yes (Death, Life-Threatening, Hospitalization, Disabling, Other)
  Sender: FDA-Public Use
  Company Number: US-ACTELION-A-US2014-105294

PATIENT
  Age: 87 Year
  Sex: Female
  Weight: 86.17 kg

DRUGS (13)
  1. COLCHICINE. [Concomitant]
     Active Substance: COLCHICINE
     Dosage: 0.6 MG, QD
  2. TRACLEER [Suspect]
     Active Substance: BOSENTAN\BOSENTAN MONOHYDRATE
     Dosage: UNK
     Route: 048
  3. ALBUTEROL. [Concomitant]
     Active Substance: ALBUTEROL
  4. ALDACTONE [Concomitant]
     Active Substance: SPIRONOLACTONE
     Dosage: 25 MG, BID
  5. LIPITOR [Concomitant]
     Active Substance: ATORVASTATIN CALCIUM
     Dosage: 20 MG, QD
  6. OXYGEN. [Concomitant]
     Active Substance: OXYGEN
  7. REVATIO [Concomitant]
     Active Substance: SILDENAFIL CITRATE
     Dosage: 20 MG, TID
  8. CARTIA XT [Concomitant]
     Active Substance: DILTIAZEM HYDROCHLORIDE
     Dosage: 120 MG, QD
  9. TYVASO [Suspect]
     Active Substance: TREPROSTINIL
     Indication: PULMONARY ARTERIAL HYPERTENSION
     Dosage: 3 PUFF, QID
     Route: 055
     Dates: start: 20140909, end: 201409
  10. TRACLEER [Suspect]
     Active Substance: BOSENTAN\BOSENTAN MONOHYDRATE
     Indication: PULMONARY HYPERTENSION
     Dosage: 125 MG, BID
     Route: 048
     Dates: start: 2010, end: 20150501
  11. COUMADIN [Concomitant]
     Active Substance: WARFARIN SODIUM
     Dosage: 7.5 MG, QD
  12. TORSEMIDE. [Concomitant]
     Active Substance: TORSEMIDE
     Dosage: 40 UNK, UNK
  13. AMBIEN [Concomitant]
     Active Substance: ZOLPIDEM TARTRATE

REACTIONS (25)
  - Cardiac failure congestive [Unknown]
  - Cough [Unknown]
  - Abdominal distension [Fatal]
  - Intestinal ischaemia [Fatal]
  - Endocarditis [Recovered/Resolved]
  - Tremor [Unknown]
  - Bacteraemia [Unknown]
  - Fluid retention [Unknown]
  - Pulmonary arterial hypertension [Unknown]
  - Condition aggravated [Unknown]
  - Dizziness [Unknown]
  - International normalised ratio increased [Fatal]
  - Enterococcal bacteraemia [Recovered/Resolved]
  - Nausea [Fatal]
  - Hypotension [Fatal]
  - Renal failure [Recovering/Resolving]
  - Clostridium difficile colitis [Unknown]
  - Gout [Unknown]
  - Hypertension [Unknown]
  - Anaemia [Not Recovered/Not Resolved]
  - Dyspnoea [Unknown]
  - Gastrointestinal haemorrhage [Fatal]
  - Vomiting [Fatal]
  - Dehydration [Recovered/Resolved]
  - Malaise [Unknown]

NARRATIVE: CASE EVENT DATE: 20140915
